FAERS Safety Report 10776863 (Version 1)
Quarter: 2015Q1

REPORT INFORMATION
  Report Type: Spontaneous
  Country: US (occurrence: None)
  Receive Date: 20150206
  Receipt Date: 20150206
  Transmission Date: 20150721
  Serious: Yes (Life-Threatening, Hospitalization, Disabling)
  Sender: FDA-Public Use
  Company Number: None

PATIENT
  Age: 54 Year
  Sex: Female

DRUGS (1)
  1. STELARA [Suspect]
     Active Substance: USTEKINUMAB
     Indication: PSORIASIS
     Dosage: 90 MG MONTHLY GIVEN INTO/UNDER THE SKIN?2 DOSES
     Route: 062

REACTIONS (15)
  - Hypersensitivity vasculitis [None]
  - Pain [None]
  - Paraesthesia [None]
  - Ventricular fibrillation [None]
  - Scar [None]
  - Epistaxis [None]
  - Pain in extremity [None]
  - Psoriasis [None]
  - Nasal congestion [None]
  - Cardiac disorder [None]
  - Rash pustular [None]
  - Blood potassium decreased [None]
  - Pruritus [None]
  - Burning sensation [None]
  - Loss of consciousness [None]

NARRATIVE: CASE EVENT DATE: 20140525
